FAERS Safety Report 4988898-X (Version None)
Quarter: 2006Q2

REPORT INFORMATION
  Report Type: 
  Country: None (occurrence: None)
  Receive Date: 20060425
  Receipt Date: 20060414
  Transmission Date: 20061013
  Serious: Yes (Other)
  Sender: FDA-Public Use
  Company Number: 224155

PATIENT
  Age: 54 Year
  Sex: Male

DRUGS (2)
  1. EFALIZUMAB(EFALIZUMAB) PWDR + SOLVENT,INJECTION SOLN, 125MG [Suspect]
     Indication: PSORIASIS
     Dosage: 1 MG/KG, SUBCUTANEOUS
     Route: 058
     Dates: start: 20010601, end: 20030101
  2. INFLIXIMAB(INFLIXIMAB) [Suspect]
     Indication: CROHN'S DISEASE
     Dosage: 5 MG/KG, INTRAVENOUS
     Route: 042
     Dates: start: 20030101

REACTIONS (8)
  - CD4 LYMPHOCYTES INCREASED [None]
  - CD8 LYMPHOCYTES INCREASED [None]
  - CONDITION AGGRAVATED [None]
  - CROHN'S DISEASE [None]
  - DERMATITIS [None]
  - MYCOSIS FUNGOIDES [None]
  - PSORIASIS [None]
  - RASH PRURITIC [None]
